FAERS Safety Report 5385424-0 (Version None)
Quarter: 2007Q3

REPORT INFORMATION
  Report Type: 
  Country: None (occurrence: None)
  Receive Date: 20070709
  Receipt Date: 20070622
  Transmission Date: 20080115
  Serious: Yes (Death)
  Sender: FDA-Public Use
  Company Number: 2007BM000070

PATIENT
  Age: 50 Year
  Sex: Female

DRUGS (6)
  1. PREDNISOLONE [Suspect]
     Indication: RHEUMATOID ARTHRITIS
     Dosage: SEE IMAGE
     Route: 048
  2. ORAPRED [Suspect]
  3. METHYLPREDNISOLONE [Suspect]
     Indication: PULMONARY VASCULITIS
     Dosage: 125 MG; BID; IV
     Route: 042
  4. AMPHOTERICIN B [Concomitant]
  5. COTRIM [Concomitant]
  6. TEICOPLANIN [Concomitant]

REACTIONS (12)
  - BRONCHOPULMONARY ASPERGILLOSIS [None]
  - COLLAPSE OF LUNG [None]
  - EMPYEMA [None]
  - HIP ARTHROPLASTY [None]
  - HYDROPNEUMOTHORAX [None]
  - PLEURAL FIBROSIS [None]
  - POSTOPERATIVE WOUND INFECTION [None]
  - PULMONARY VASCULITIS [None]
  - PURULENT DISCHARGE [None]
  - RED BLOOD CELL SEDIMENTATION RATE INCREASED [None]
  - RESPIRATORY FAILURE [None]
  - VASCULITIS [None]
